FAERS Safety Report 20873371 (Version 4)
Quarter: 2022Q4

REPORT INFORMATION
  Report Type: Report from Study
  Country: US (occurrence: US)
  Receive Date: 20220525
  Receipt Date: 20221208
  Transmission Date: 20230113
  Serious: Yes (Other)
  Sender: FDA-Public Use
  Company Number: US-ABBVIE-22K-163-4406875-00

PATIENT
  Age: 70 Year
  Sex: Male

DRUGS (2)
  1. SKYRIZI [Suspect]
     Active Substance: RISANKIZUMAB-RZAA
     Indication: Psoriatic arthropathy
     Route: 058
  2. SKYRIZI [Suspect]
     Active Substance: RISANKIZUMAB-RZAA
     Route: 058
     Dates: start: 20220307, end: 20220906

REACTIONS (10)
  - Skin cancer [Unknown]
  - Renal failure [Recovered/Resolved]
  - Transurethral prostatectomy [Recovering/Resolving]
  - Urinary retention [Recovered/Resolved]
  - Prostatomegaly [Recovered/Resolved]
  - Joint swelling [Unknown]
  - Knee arthroplasty [Recovering/Resolving]
  - Ligament rupture [Unknown]
  - Tendon rupture [Unknown]
  - Knee arthroplasty [Recovered/Resolved]

NARRATIVE: CASE EVENT DATE: 20220515
